FAERS Safety Report 22159449 (Version 4)
Quarter: 2024Q1

REPORT INFORMATION
  Report Type: Report from Study
  Country: US (occurrence: US)
  Receive Date: 20230331
  Receipt Date: 20240311
  Transmission Date: 20240410
  Serious: Yes (Other)
  Sender: FDA-Public Use
  Company Number: US-SA-SAC20230329001508

PATIENT
  Age: 67 Year
  Sex: Male

DRUGS (1)
  1. ELIGLUSTAT [Suspect]
     Active Substance: ELIGLUSTAT
     Indication: Gaucher^s disease
     Dosage: 84 (UNIT NOT PROVIDED), QD
     Route: 048
     Dates: start: 20230225

REACTIONS (3)
  - Electrocardiogram QT prolonged [Not Recovered/Not Resolved]
  - Abdominal discomfort [Not Recovered/Not Resolved]
  - Adenoma benign [Not Recovered/Not Resolved]

NARRATIVE: CASE EVENT DATE: 20230101
